FAERS Safety Report 8888551 (Version 1)
Quarter: 2012Q4

REPORT INFORMATION
  Report Type: Report from Study
  Country: AU (occurrence: AU)
  Receive Date: 20121106
  Receipt Date: 20121106
  Transmission Date: 20130627
  Serious: Yes (Life-Threatening, Hospitalization, Other)
  Sender: FDA-Public Use
  Company Number: AU-ASTRAZENECA-2012SE83287

PATIENT
  Age: 0 Week
  Sex: Female
  Weight: 3.4 kg

DRUGS (5)
  1. SEROQUEL [Suspect]
     Indication: PSYCHOTIC DISORDER
     Dosage: STARTED PRE-PREGNANCY
     Route: 064
     Dates: end: 20120531
  2. SERTRALINE [Suspect]
     Indication: ANTIDEPRESSANT THERAPY
     Dosage: STARTED PRE-PREGNANCY
     Route: 064
     Dates: end: 20120531
  3. MAXALON [Concomitant]
     Indication: VOMITING
     Dosage: STARTED IN FIRST TRIMESTER AND STOPPED IN SECOND TRIMESTER (THREE TIMES A DAY/AS REQUIRED)
     Route: 064
  4. BLACKMORES P BF FORMULA [Concomitant]
     Indication: VITAMIN SUPPLEMENTATION
     Dosage: STARTED IN FIRST TRIMESTER
     Route: 064
     Dates: end: 20120531
  5. VITAMIN D [Concomitant]
     Indication: VITAMIN D
     Route: 064
     Dates: end: 20120531

REACTIONS (1)
  - Foetal distress syndrome [Recovered/Resolved]
